FAERS Safety Report 24105574 (Version 1)
Quarter: 2024Q3

REPORT INFORMATION
  Report Type: Spontaneous
  Country: US (occurrence: None)
  Receive Date: 20240716
  Receipt Date: 20240716
  Transmission Date: 20241017
  Serious: Yes (Other)
  Sender: Public
  Company Number: None

PATIENT
  Age: 50 Year
  Sex: Male

DRUGS (1)
  1. TAVNEOS [Suspect]
     Active Substance: AVACOPAN
     Dates: start: 20240425

REACTIONS (2)
  - Liver function test abnormal [None]
  - Therapy cessation [None]

NARRATIVE: CASE EVENT DATE: 20240716
